FAERS Safety Report 7642419-1 (Version None)
Quarter: 2011Q3

REPORT INFORMATION
  Report Type: 
  Country: None (occurrence: None)
  Receive Date: 20110728
  Receipt Date: 20101007
  Transmission Date: 20111222
  Serious: No
  Sender: FDA-Public Use
  Company Number: US-MYLANLABS-2010S1018507

PATIENT
  Sex: Female

DRUGS (3)
  1. LEVOTHYROXINE SODIUM [Suspect]
     Indication: HYPOTHYROIDISM
     Route: 048
     Dates: start: 20100101
  2. ASPIRIN [Concomitant]
     Route: 048
  3. CALCIUM ACETATE [Concomitant]
     Route: 048

REACTIONS (3)
  - TREMOR [None]
  - BLOOD GLUCOSE DECREASED [None]
  - BLOOD THYROID STIMULATING HORMONE INCREASED [None]
